FAERS Safety Report 24428745 (Version 1)
Quarter: 2024Q4

REPORT INFORMATION
  Report Type: Report from Study
  Country: US (occurrence: US)
  Receive Date: 20241011
  Receipt Date: 20241011
  Transmission Date: 20250115
  Serious: Yes (Hospitalization)
  Sender: PARATEK PHARMACEUTICALS
  Company Number: US-PARATEK PHARMACEUTICALS, INC.-2024PTK00518

PATIENT
  Age: 78 Year
  Sex: Female

DRUGS (25)
  1. NUZYRA [Suspect]
     Active Substance: OMADACYCLINE
     Dosage: 300 MG, 1X/DAY
     Route: 048
     Dates: start: 20240314, end: 2024
  2. NUZYRA [Suspect]
     Active Substance: OMADACYCLINE
     Dosage: 300 MG, 1X/DAY
     Route: 048
     Dates: start: 2024, end: 2024
  3. ACETAMINOPHEN [Concomitant]
     Active Substance: ACETAMINOPHEN
  4. ASPIRIN [Concomitant]
     Active Substance: ASPIRIN
  5. CLOPIDOGREL BESILATE [Concomitant]
     Active Substance: CLOPIDOGREL BESILATE
  6. DICLOFENAC [Concomitant]
     Active Substance: DICLOFENAC
     Route: 061
  7. FAMOTIDINE [Concomitant]
     Active Substance: FAMOTIDINE
  8. FERROUS SULFATE [Concomitant]
     Active Substance: FERROUS SULFATE
  9. FLUTICASONE PROPIONATE [Concomitant]
     Active Substance: FLUTICASONE PROPIONATE
     Route: 045
  10. HEPARIN [Concomitant]
     Active Substance: HEPARIN SODIUM
  11. ISOSORBIDE MONONITRATE [Concomitant]
     Active Substance: ISOSORBIDE MONONITRATE
  12. PROBIOTICS NOS [Concomitant]
     Active Substance: PROBIOTICS NOS
  13. LINEZOLID [Concomitant]
     Active Substance: LINEZOLID
  14. LISINOPRIL AND HYDROCHLOROTHIAZIDE [Concomitant]
     Active Substance: HYDROCHLOROTHIAZIDE\LISINOPRIL
  15. LYRICA [Concomitant]
     Active Substance: PREGABALIN
  16. METOPROLOL [Concomitant]
     Active Substance: METOPROLOL
  17. NITROSTAT [Concomitant]
     Active Substance: NITROGLYCERIN
  18. NYSTATIN [Concomitant]
     Active Substance: NYSTATIN
     Route: 061
  19. ONDANSETRON HYDROCHLORIDE [Concomitant]
     Active Substance: ONDANSETRON HYDROCHLORIDE
  20. OS CAL D [Concomitant]
  21. RESTASIS [Concomitant]
     Active Substance: CYCLOSPORINE
  22. SODIUM CHLORIDE [Concomitant]
     Active Substance: SODIUM CHLORIDE
  23. TIZANIDINE [Concomitant]
     Active Substance: TIZANIDINE
  24. VITAMIN B12 [Concomitant]
     Active Substance: CYANOCOBALAMIN
  25. VITAMIN C [Concomitant]
     Active Substance: ASCORBIC ACID

REACTIONS (2)
  - Hospitalisation [Not Recovered/Not Resolved]
  - Constipation [Unknown]

NARRATIVE: CASE EVENT DATE: 20240101
